FAERS Safety Report 15010204 (Version 1)
Quarter: 2018Q2

REPORT INFORMATION
  Report Type: Spontaneous
  Country: US (occurrence: US)
  Receive Date: 20180614
  Receipt Date: 20180614
  Transmission Date: 20180711
  Serious: No
  Sender: FDA-Public Use
  Company Number: US-BAYER-2018-108131

PATIENT
  Age: 81 Year
  Sex: Female
  Weight: 82.99 kg

DRUGS (9)
  1. MIRALAX [Suspect]
     Active Substance: POLYETHYLENE GLYCOL 3350
     Indication: GASTROINTESTINAL DISORDER
     Dosage: 17 G, QD (4-8 OZ BEVERAGE DOSE)
     Route: 048
     Dates: start: 2017
  2. FUROSEMIDE. [Concomitant]
     Active Substance: FUROSEMIDE
  3. CARVEDILOL. [Concomitant]
     Active Substance: CARVEDILOL
  4. GABAPENTIN. [Concomitant]
     Active Substance: GABAPENTIN
  5. MIRABEGRON [Concomitant]
     Active Substance: MIRABEGRON
  6. SIMVASTATIN. [Concomitant]
     Active Substance: SIMVASTATIN
  7. XARELTO [Concomitant]
     Active Substance: RIVAROXABAN
  8. ANASTROZOLE. [Concomitant]
     Active Substance: ANASTROZOLE
  9. TOLTERODINE [Concomitant]
     Active Substance: TOLTERODINE

REACTIONS (6)
  - Product use issue [Unknown]
  - Off label use [Unknown]
  - Product prescribing issue [Unknown]
  - Product physical issue [None]
  - Poor quality drug administered [Unknown]
  - Drug ineffective [None]
